FAERS Safety Report 5529645-2 (Version None)
Quarter: 2007Q4

REPORT INFORMATION
  Report Type: 
  Country: None (occurrence: None)
  Receive Date: 20071119
  Receipt Date: 20070910
  Transmission Date: 20080405
  Serious: No
  Sender: FDA-Public Use
  Company Number: TPA2007A01895

PATIENT
  Age: 56 Year
  Sex: Male
  Weight: 83.9154 kg

DRUGS (5)
  1. ROZEREM [Suspect]
     Indication: INSOMNIA
     Dosage: 8 MG, QHS, PER ORAL
     Route: 048
     Dates: start: 20070906
  2. AMBIEN [Concomitant]
  3. VYTORIN [Concomitant]
  4. TERAZOSIN HCL [Concomitant]
  5. ATENOLOL [Concomitant]

REACTIONS (3)
  - DRUG INEFFECTIVE [None]
  - INITIAL INSOMNIA [None]
  - MIDDLE INSOMNIA [None]
